FAERS Safety Report 5524647-4 (Version None)
Quarter: 2007Q4

REPORT INFORMATION
  Report Type: 
  Country: None (occurrence: None)
  Receive Date: 20071123
  Receipt Date: 20071116
  Transmission Date: 20080405
  Serious: Yes (Hospitalization, Other)
  Sender: FDA-Public Use
  Company Number: US-SHR-US-2007-038075

PATIENT
  Age: 68 Year
  Sex: Female
  Weight: 61.224 kg

DRUGS (9)
  1. BETASERON [Suspect]
     Indication: RELAPSING-REMITTING MULTIPLE SCLEROSIS
     Dosage: 8 MIU, EVERY 2D
     Route: 058
     Dates: start: 19940317
  2. BETASERON [Suspect]
     Dosage: 8 MIU, EVERY 2D
     Route: 058
  3. DILANTIN                                /CAN/ [Concomitant]
     Dosage: 300 MG/D, UNK
  4. KEFLEX [Concomitant]
  5. NITROFUR MAC [Concomitant]
     Dosage: 100 MG/D, BED T.
  6. ASPIRIN [Concomitant]
     Dosage: UNK, 1X/DAY
  7. ASPIRIN [Concomitant]
     Indication: ANTICOAGULANT THERAPY
     Dosage: 325 MG, UNK
  8. ASPIRIN [Concomitant]
     Dosage: 81 MG/D, UNK
  9. HEPARIN [Concomitant]
     Dates: end: 20061211

REACTIONS (9)
  - CONVULSION [None]
  - ESCHERICHIA INFECTION [None]
  - MENTAL STATUS CHANGES [None]
  - MULTIPLE SCLEROSIS [None]
  - SINUSITIS [None]
  - SPEECH DISORDER [None]
  - TROPONIN INCREASED [None]
  - URINARY TRACT INFECTION [None]
  - UROSEPSIS [None]
